FAERS Safety Report 11259661 (Version 1)
Quarter: 2015Q3

REPORT INFORMATION
  Report Type: Report from Study
  Country: MX (occurrence: MX)
  Receive Date: 20150710
  Receipt Date: 20150710
  Transmission Date: 20151125
  Serious: Yes (Death, Hospitalization)
  Sender: FDA-Public Use
  Company Number: PHHY2015MX081407

PATIENT
  Age: 73 Year
  Sex: Male

DRUGS (1)
  1. ULTIBRO BREEZHALER [Suspect]
     Active Substance: GLYCOPYRRONIUM\INDACATEROL
     Indication: LUNG DISORDER
     Dosage: 50 UG, UNK (START: 1-1/2 MONTHS AGO)
     Route: 065
     Dates: end: 20150607

REACTIONS (3)
  - Respiratory arrest [Fatal]
  - Dyspnoea [Fatal]
  - Off label use [Unknown]

NARRATIVE: CASE EVENT DATE: 20150607
